FAERS Safety Report 20604873 (Version 1)
Quarter: 2022Q1

REPORT INFORMATION
  Report Type: Spontaneous
  Country: US (occurrence: None)
  Receive Date: 20220317
  Receipt Date: 20220317
  Transmission Date: 20220424
  Serious: No
  Sender: FDA-Public Use
  Company Number: 2022A100081

PATIENT
  Sex: Female

DRUGS (20)
  1. FASLODEX [Suspect]
     Active Substance: FULVESTRANT
     Dosage: DOSE UNKNOWN
     Route: 030
  2. IBRANCE [Suspect]
     Active Substance: PALBOCICLIB
     Indication: Breast cancer female
     Route: 048
     Dates: start: 20220114
  3. IBRANCE [Suspect]
     Active Substance: PALBOCICLIB
     Indication: Breast cancer female
     Dosage: 75.0MG UNKNOWN
     Route: 048
     Dates: start: 20220114
  4. ROSUVASTATIN [Suspect]
     Active Substance: ROSUVASTATIN
     Dosage: DOSE UNKOWN
     Route: 048
  5. COLACE [Concomitant]
     Active Substance: DOCUSATE SODIUM
  6. FASLODEX [Concomitant]
     Active Substance: FULVESTRANT
  7. VITAMIN B12 [Concomitant]
     Active Substance: CYANOCOBALAMIN
  8. ELIQUIS [Concomitant]
     Active Substance: APIXABAN
  9. CALCIUM [Concomitant]
     Active Substance: CALCIUM
  10. FUROS [Concomitant]
  11. CARRVEDILOL [Concomitant]
  12. DIGIOXIN [Concomitant]
  13. LORATADINE [Concomitant]
     Active Substance: LORATADINE
  14. ALPRAZOLAM [Concomitant]
     Active Substance: ALPRAZOLAM
  15. SPIRONOLACTONE [Concomitant]
     Active Substance: SPIRONOLACTONE
  16. VITAMIN D3 [Concomitant]
     Active Substance: CHOLECALCIFEROL
  17. ROSUVASTATIN [Concomitant]
     Active Substance: ROSUVASTATIN
  18. PREGRABALIN [Concomitant]
  19. PLAQUENIL [Concomitant]
     Active Substance: HYDROXYCHLOROQUINE SULFATE
  20. INTRAR [Concomitant]

REACTIONS (3)
  - Red blood cell count decreased [Unknown]
  - Neuropathy peripheral [Unknown]
  - Constipation [Unknown]
